FAERS Safety Report 8326251-1 (Version None)
Quarter: 2012Q2

REPORT INFORMATION
  Report Type: 
  Country: None (occurrence: None)
  Receive Date: 20120427
  Receipt Date: 20120416
  Transmission Date: 20120825
  Serious: Yes (Hospitalization)
  Sender: FDA-Public Use
  Company Number: 1263725

PATIENT
  Age: 58 Year
  Sex: Male

DRUGS (3)
  1. DIPYRIDAMOLE [Suspect]
     Indication: CARDIAC IMAGING PROCEDURE
     Dosage: INTRAVENOUS DRIP
     Route: 041
  2. CLOPIDOGREL [Concomitant]
  3. COUMADIN [Concomitant]

REACTIONS (7)
  - VASODILATATION [None]
  - STEAL SYNDROME [None]
  - APHASIA [None]
  - ASTHENIA [None]
  - CONTRAST MEDIA REACTION [None]
  - HYPOPERFUSION [None]
  - TRANSIENT ISCHAEMIC ATTACK [None]
